FAERS Safety Report 24869134 (Version 1)
Quarter: 2025Q1

REPORT INFORMATION
  Report Type: Spontaneous
  Country: US (occurrence: None)
  Receive Date: 20250119
  Receipt Date: 20250119
  Transmission Date: 20250409
  Serious: Yes (Disabling)
  Sender: FDA-CTU
  Company Number: None

PATIENT
  Age: 21 Year
  Sex: Male
  Weight: 90 kg

DRUGS (1)
  1. ESCITALOPRAM [Suspect]
     Active Substance: ESCITALOPRAM OXALATE
     Indication: Anxiety
     Dosage: FREQUENCY : AT BEDTIME;?
     Route: 048
     Dates: start: 20180202, end: 20181220

REACTIONS (14)
  - Sexual dysfunction [None]
  - Erectile dysfunction [None]
  - Loss of libido [None]
  - Genital hypoaesthesia [None]
  - Penile curvature [None]
  - Penile size reduced [None]
  - Peripheral sensory neuropathy [None]
  - Urinary incontinence [None]
  - Anosmia [None]
  - Anhedonia [None]
  - Emotional disorder [None]
  - Brain fog [None]
  - Cognitive disorder [None]
  - Inflammation [None]

NARRATIVE: CASE EVENT DATE: 20180202
